FAERS Safety Report 9790534 (Version 2)
Quarter: 2014Q1

REPORT INFORMATION
  Report Type: Spontaneous
  Country: FR (occurrence: FR)
  Receive Date: 20131231
  Receipt Date: 20140109
  Transmission Date: 20141002
  Serious: Yes (Hospitalization, Other)
  Sender: FDA-Public Use
  Company Number: FR-PFIZER INC-2013369787

PATIENT
  Age: 83 Year
  Sex: Female

DRUGS (10)
  1. LYRICA [Suspect]
     Dosage: 50 MG, 2X/DAY
     Route: 048
     Dates: start: 20130102
  2. OXYNORM [Suspect]
     Dosage: UNK
     Route: 048
     Dates: end: 20130102
  3. OXYCONTIN [Suspect]
     Dosage: 5 MG, 2X/DAY
     Route: 048
     Dates: end: 20130102
  4. SKENAN LP [Suspect]
     Dosage: 60 MG, 2X/DAY
     Route: 048
     Dates: start: 20130102, end: 20130103
  5. LIPANTHYL [Concomitant]
     Dosage: 1 DF, 1X/DAY
     Route: 048
     Dates: end: 20130103
  6. COKENZEN [Concomitant]
     Dosage: 1 DF, 1X/DAY
     Route: 048
     Dates: end: 20130103
  7. COUMADINE [Concomitant]
     Dosage: 2 MG, 1X/DAY
     Route: 048
  8. FORLAX [Concomitant]
     Dosage: 10 G, 1X/DAY
     Route: 048
  9. UVEDOSE [Concomitant]
     Dosage: 100000 IU, MONTHLY
     Route: 048
  10. DOLIPRANE [Concomitant]
     Dosage: 1000 MG, 3X/DAY
     Route: 048

REACTIONS (7)
  - Hypotension [Recovered/Resolved]
  - Confusional state [Recovered/Resolved]
  - Somnolence [Recovered/Resolved]
  - Fall [Recovered/Resolved]
  - Intestinal obstruction [Recovered/Resolved]
  - Renal failure acute [Unknown]
  - Rhabdomyolysis [Unknown]
